FAERS Safety Report 6217762-3 (Version None)
Quarter: 2009Q2

REPORT INFORMATION
  Report Type: 
  Country: None (occurrence: None)
  Receive Date: 20090608
  Receipt Date: 20090529
  Transmission Date: 20091009
  Serious: Yes (Disabling)
  Sender: FDA-Public Use
  Company Number: JP-JNJFOC-20090200206

PATIENT
  Sex: Female

DRUGS (15)
  1. CRAVIT [Suspect]
     Indication: PELVIC ABSCESS
     Route: 048
  2. NAUZELIN [Concomitant]
     Indication: NAUSEA
     Route: 048
  3. FLOMOXEF SODIUM [Concomitant]
     Indication: PELVIC ABSCESS
     Route: 042
  4. THIOPENTAL SODIUM [Concomitant]
     Indication: ANAESTHESIA PROCEDURE
     Route: 042
  5. DAIKENTYUTO [Concomitant]
     Indication: ABDOMINAL DISTENSION
     Route: 048
  6. DEPAS [Concomitant]
     Indication: ANXIETY
     Route: 048
  7. MUCOSTA [Concomitant]
     Indication: GASTRITIS
     Route: 048
  8. TAKEPRON [Concomitant]
     Indication: GASTRIC ULCER
     Route: 048
  9. MEILAX [Concomitant]
     Indication: INSOMNIA
     Route: 048
  10. LOXONIN [Concomitant]
     Indication: ANALGESIA
     Route: 048
  11. MONILAC [Concomitant]
     Indication: CONSTIPATION
     Route: 048
  12. ANAFRANIL [Concomitant]
     Indication: DEPRESSION
     Route: 048
  13. ROHYPNOL [Concomitant]
     Indication: INSOMNIA
     Route: 048
  14. ALESION [Concomitant]
     Indication: PRURITUS
     Route: 048
  15. LEVOMEPROMAZINE [Concomitant]
     Indication: DEPRESSION
     Route: 048

REACTIONS (2)
  - EOSINOPHILIA [None]
  - NEUROGENIC BLADDER [None]
